FAERS Safety Report 9394020 (Version 1)
Quarter: 2013Q3

REPORT INFORMATION
  Report Type: Spontaneous
  Country: DK (occurrence: FR)
  Receive Date: 20130710
  Receipt Date: 20130710
  Transmission Date: 20140515
  Serious: Yes (Life-Threatening)
  Sender: FDA-Public Use
  Company Number: FR-FRI-1000046568

PATIENT
  Sex: Male
  Weight: 3 kg

DRUGS (1)
  1. DINOPROSTONE [Suspect]
     Route: 064

REACTIONS (1)
  - Lactic acidosis [Recovered/Resolved]
